FAERS Safety Report 17491067 (Version 1)
Quarter: 2020Q1

REPORT INFORMATION
  Report Type: Report from Study
  Country: JP (occurrence: JP)
  Receive Date: 20200303
  Receipt Date: 20200303
  Transmission Date: 20200409
  Serious: Yes (Hospitalization, Other)
  Sender: FDA-Public Use
  Company Number: JP-SEATTLE GENETICS-2020SGN01005

PATIENT
  Age: 54 Year
  Sex: Male
  Weight: 99.6 kg

DRUGS (5)
  1. AMLODIPINE                         /00972402/ [Concomitant]
     Active Substance: AMLODIPINE BESYLATE
     Indication: HYPERTENSION
     Dosage: 5 MILLIGRAM, QD
     Route: 048
     Dates: start: 20190913, end: 20200206
  2. CLARITH [Concomitant]
     Active Substance: CLARITHROMYCIN
     Indication: CUTANEOUS T-CELL LYMPHOMA
     Dosage: 200 MILLIGRAM, BID
     Route: 048
     Dates: start: 20190930, end: 20200206
  3. SELTOUCH [Concomitant]
     Active Substance: FELBINAC
     Indication: ARTHRALGIA
     Dosage: UNK, QD
     Route: 062
     Dates: start: 20200116
  4. LOCOID [Concomitant]
     Active Substance: HYDROCORTISONE BUTYRATE
     Indication: CUTANEOUS T-CELL LYMPHOMA
     Dosage: UNK UNK, BID
     Route: 062
     Dates: start: 20190801
  5. BRENTUXIMAB VEDOTIN [Suspect]
     Active Substance: BRENTUXIMAB VEDOTIN
     Indication: CUTANEOUS T-CELL LYMPHOMA
     Dosage: 1.8 MILLIGRAM/KILOGRAM, Q3WEEKS
     Route: 041
     Dates: start: 20190731, end: 20200116

REACTIONS (5)
  - Chills [Unknown]
  - Nasopharyngitis [Unknown]
  - Decreased appetite [Unknown]
  - Acute kidney injury [Recovered/Resolved]
  - Pyrexia [Unknown]

NARRATIVE: CASE EVENT DATE: 20200203
